FAERS Safety Report 24830769 (Version 1)
Quarter: 2025Q1

REPORT INFORMATION
  Report Type: Report from Study
  Country: US (occurrence: US)
  Receive Date: 20250110
  Receipt Date: 20250110
  Transmission Date: 20250409
  Serious: Yes (Other)
  Sender: XERIS PHARMACEUTICALS
  Company Number: US-BRIAN CONNER SVP QUALITY AND CHIEF COMPLIANCE OFFICER-2023XER01970

PATIENT
  Sex: Male

DRUGS (5)
  1. KEVEYIS [Suspect]
     Active Substance: DICHLORPHENAMIDE
     Indication: Paralysis
     Dosage: 1 TABLET (50 MG), 1X/DAY
     Route: 048
     Dates: start: 20230630, end: 2023
  2. KEVEYIS [Suspect]
     Active Substance: DICHLORPHENAMIDE
     Dosage: 1 TABLET (50 MG), 2X/DAY
     Route: 048
     Dates: start: 2023, end: 2023
  3. KEVEYIS [Suspect]
     Active Substance: DICHLORPHENAMIDE
     Dosage: 1 TABLET (50 MG), 1X/DAY
     Route: 048
     Dates: start: 2023
  4. KEVEYIS [Suspect]
     Active Substance: DICHLORPHENAMIDE
     Dosage: 1 TABLET (50 MG), 1X/DAY
     Route: 048
  5. KEVEYIS [Suspect]
     Active Substance: DICHLORPHENAMIDE
     Dosage: 1 TABLET (50 MG), 1X/DAY
     Route: 048

REACTIONS (11)
  - Hepatic failure [Unknown]
  - Decreased appetite [Unknown]
  - Vomiting [Recovered/Resolved]
  - Nervousness [Unknown]
  - Feeling abnormal [Unknown]
  - Treatment noncompliance [Recovered/Resolved]
  - Paraesthesia [Unknown]
  - Nausea [Recovered/Resolved]
  - Paralysis [Recovered/Resolved]
  - Malaise [Recovered/Resolved]
  - Product dose omission issue [Recovered/Resolved]

NARRATIVE: CASE EVENT DATE: 20230101
